FAERS Safety Report 19653098 (Version 3)
Quarter: 2021Q4

REPORT INFORMATION
  Report Type: Report from Study
  Country: ES (occurrence: ES)
  Receive Date: 20210803
  Receipt Date: 20211101
  Transmission Date: 20220303
  Serious: Yes (Death, Hospitalization, Other)
  Sender: FDA-Public Use
  Company Number: ES-AMGEN-ESPNI2021115019

PATIENT
  Age: 54 Year
  Sex: Female

DRUGS (28)
  1. AMG-510 [Suspect]
     Active Substance: AMG-510
     Indication: Non-small cell lung cancer
     Dosage: 960 MILLIGRAM, QD
     Route: 048
     Dates: start: 20210528, end: 20210606
  2. AMG-510 [Suspect]
     Active Substance: AMG-510
     Indication: Lung adenocarcinoma
     Dosage: 960 MILLIGRAM, QD
     Route: 048
     Dates: start: 20210607, end: 20210607
  3. DEXAMETHASONE [Concomitant]
     Active Substance: DEXAMETHASONE
     Dosage: 4 MILLIGRAM
  4. DEXAMETHASONE [Concomitant]
     Active Substance: DEXAMETHASONE
     Dosage: 8 MILLIGRAM
     Route: 048
     Dates: start: 20210606, end: 20210608
  5. FENTANYL [Concomitant]
     Active Substance: FENTANYL
     Dosage: 50 MICROGRAM/H
     Route: 062
  6. MOTILIUM [Concomitant]
     Active Substance: DOMPERIDONE
     Dosage: 10 MILLIGRAM
  7. MOTILIUM [Concomitant]
     Active Substance: DOMPERIDONE
     Dosage: 10 MILLIGRAM
     Route: 048
     Dates: start: 20210606, end: 20210608
  8. IBUPROFEN [Concomitant]
     Active Substance: IBUPROFEN
     Dosage: 400
  9. CYMBALTA [Concomitant]
     Active Substance: DULOXETINE HYDROCHLORIDE
     Dosage: 60 MILLIGRAM
  10. DIAZEPAM [Concomitant]
     Active Substance: DIAZEPAM
     Dosage: 10 MILLIGRAM
  11. ENEMA CASEN [PHOSPHORIC ACID SODIUM;SODIUM PHOSPHATE DIBASIC] [Concomitant]
     Dosage: 250 MILLILITER, AS NECESSARY
     Route: 054
     Dates: start: 20210606, end: 20210608
  12. ENOXAPARIN [Concomitant]
     Active Substance: ENOXAPARIN
     Dosage: 40 MILLIGRAM, QD
     Route: 058
     Dates: start: 20210606, end: 20210608
  13. FRESUBIN ENERGY [CARBOHYDRATES NOS;FATS NOS;MINERALS NOS;PROTEINS NOS; [Concomitant]
     Dosage: 200 MILLILITER, QD
     Route: 048
     Dates: start: 20210606, end: 20210608
  14. HALOPERIDOL [Concomitant]
     Active Substance: HALOPERIDOL
     Dosage: 5 MILLIGRAM
     Route: 058
     Dates: start: 20210606, end: 20210608
  15. POLYETHYLENE GLYCOLS [Concomitant]
     Active Substance: POLYETHYLENE GLYCOLS
     Dosage: 13.8 GRAM, BID
     Route: 048
     Dates: start: 20210606, end: 20210608
  16. METAMIZOLE MAGNESIUM [Concomitant]
     Active Substance: METAMIZOLE MAGNESIUM
     Dosage: 2 GRAM, Q8H
     Route: 042
     Dates: start: 20210606, end: 20210608
  17. METOCLOPRAMIDE [Concomitant]
     Active Substance: METOCLOPRAMIDE
     Dosage: 10 MILLIGRAM
     Route: 042
     Dates: start: 20210606, end: 20210608
  18. MIDAZOLAM [Concomitant]
     Active Substance: MIDAZOLAM
     Dosage: 2.5 MILLIGRAM
     Route: 058
     Dates: start: 20210606, end: 20210606
  19. OMEPRAZOLE [Concomitant]
     Active Substance: OMEPRAZOLE
     Dosage: 40 MILLIGRAM, QD
     Route: 042
     Dates: start: 20210606, end: 20210608
  20. ACETAMINOPHEN [Concomitant]
     Active Substance: ACETAMINOPHEN
     Dosage: 1 GRAM, Q8H
     Route: 042
     Dates: start: 20210605, end: 20210608
  21. POTASSIUM GLUCONATE [Concomitant]
     Active Substance: POTASSIUM GLUCONATE
     Dosage: 500 MILLILITER, Q8H
     Route: 042
     Dates: start: 20210606, end: 20210606
  22. POTASSIUM GLUCONATE [Concomitant]
     Active Substance: POTASSIUM GLUCONATE
     Dosage: 500 MILLILITER, QD
     Route: 042
     Dates: start: 20210606, end: 20210608
  23. RISPERIDONE [Concomitant]
     Active Substance: RISPERIDONE
     Dosage: .25 MILLILITER
     Route: 048
     Dates: start: 20210606, end: 20210608
  24. TRAMADOL [Concomitant]
     Active Substance: TRAMADOL
     Dosage: 100 MILLIGRAM
     Route: 042
     Dates: start: 20210606, end: 20210608
  25. TRAZODONE HYDROCHLORIDE [Concomitant]
     Active Substance: TRAZODONE HYDROCHLORIDE
     Dosage: .5
     Route: 048
     Dates: start: 20210606, end: 20210608
  26. ALPRAZOLAM [Concomitant]
     Active Substance: ALPRAZOLAM
     Dosage: 0.5 MILLIGRAM
     Route: 048
     Dates: start: 20210606, end: 20210608
  27. MORPHINE [Concomitant]
     Active Substance: MORPHINE
     Dosage: 10 MILLIGRAM, QD
     Route: 042
     Dates: start: 20210606, end: 20210608
  28. MORPHINE [Concomitant]
     Active Substance: MORPHINE
     Dosage: 5 MILLIGRAM
     Route: 058
     Dates: start: 20210606, end: 20210608

REACTIONS (4)
  - Pleural effusion [Fatal]
  - Hip fracture [Unknown]
  - Gastrointestinal haemorrhage [Unknown]
  - Fall [Unknown]

NARRATIVE: CASE EVENT DATE: 20210608
